FAERS Safety Report 19751163 (Version 4)
Quarter: 2025Q3

REPORT INFORMATION
  Report Type: Spontaneous
  Country: US (occurrence: US)
  Receive Date: 20210826
  Receipt Date: 20250704
  Transmission Date: 20251021
  Serious: Yes (Hospitalization)
  Sender: ROCHE
  Company Number: US-ROCHE-2896879

PATIENT
  Age: 61 Year
  Sex: Male
  Weight: 84.37 kg

DRUGS (34)
  1. XOLAIR [Suspect]
     Active Substance: OMALIZUMAB
     Indication: Asthma
     Dosage: FORM STRENGTH: 75MG/0.9ML
     Route: 058
     Dates: start: 20190914
  2. XOLAIR [Suspect]
     Active Substance: OMALIZUMAB
     Dosage: FORM STRENGTH: 75MG/0.9ML
     Route: 058
     Dates: start: 20200501
  3. XOLAIR [Suspect]
     Active Substance: OMALIZUMAB
     Dosage: FORM STRENGTH: 75MG/0.9ML
     Route: 058
     Dates: start: 20190914
  4. XOLAIR [Suspect]
     Active Substance: OMALIZUMAB
     Dosage: FORM STRENGTH: 150MG/ML
     Route: 058
     Dates: start: 20190914
  5. XOLAIR [Suspect]
     Active Substance: OMALIZUMAB
     Dosage: FORM STRENGTH: 150MG/ML
     Route: 058
     Dates: start: 20250509
  6. XOLAIR [Suspect]
     Active Substance: OMALIZUMAB
     Dosage: FORM STRENGTH: 150MG/ML, 150 MG AND 75 MG
     Route: 058
     Dates: start: 20111216
  7. ACAMPROL [Concomitant]
  8. ALBUTEROL [Concomitant]
     Active Substance: ALBUTEROL
  9. ALENDRONATE [Concomitant]
     Active Substance: ALENDRONATE SODIUM
  10. ARIPIPRAZOLE [Concomitant]
     Active Substance: ARIPIPRAZOLE
  11. ASPIRIN [Concomitant]
     Active Substance: ASPIRIN
  12. ATORVASTATIN [Concomitant]
     Active Substance: ATORVASTATIN
  13. CARVEDILOL [Concomitant]
     Active Substance: CARVEDILOL
  14. DULOXETINE [Concomitant]
     Active Substance: DULOXETINE
  15. FLUOXETINE [Concomitant]
     Active Substance: FLUOXETINE HYDROCHLORIDE
  16. FLUTICASONE PROPIONATE [Concomitant]
     Active Substance: FLUTICASONE PROPIONATE
  17. GABAPENTIN [Concomitant]
     Active Substance: GABAPENTIN
  18. HYDROXYZINE HYDROCHLORIDE [Concomitant]
     Active Substance: HYDROXYZINE HYDROCHLORIDE
  19. ISOSORBIDE DINITRATE [Concomitant]
     Active Substance: ISOSORBIDE DINITRATE
  20. LAMOTRIGINE [Concomitant]
     Active Substance: LAMOTRIGINE
  21. MECLIZINE [Concomitant]
     Active Substance: MECLIZINE HYDROCHLORIDE
  22. METOPROLOL TARTRATE [Concomitant]
     Active Substance: METOPROLOL TARTRATE
  23. MONTELUKAST [Concomitant]
     Active Substance: MONTELUKAST
  24. NALTREXONE [Concomitant]
     Active Substance: NALTREXONE
  25. OMEPRAZOLE [Concomitant]
     Active Substance: OMEPRAZOLE
  26. PREDNISONE [Concomitant]
     Active Substance: PREDNISONE
  27. PROAIR HFA [Concomitant]
     Active Substance: ALBUTEROL SULFATE
  28. ROSUVASTATIN [Concomitant]
     Active Substance: ROSUVASTATIN
  29. TAMSULOSIN [Concomitant]
     Active Substance: TAMSULOSIN
  30. TRAZODONE [Concomitant]
     Active Substance: TRAZODONE HYDROCHLORIDE
  31. WIXELA INHUB [Concomitant]
     Active Substance: FLUTICASONE PROPIONATE\SALMETEROL XINAFOATE
  32. ARIPIPRAZOLE [Concomitant]
     Active Substance: ARIPIPRAZOLE
  33. NYSTATIN [Concomitant]
     Active Substance: NYSTATIN
  34. OXYCODONE [Concomitant]
     Active Substance: OXYCODONE

REACTIONS (2)
  - Asthma [Unknown]
  - Cerebrovascular accident [Unknown]

NARRATIVE: CASE EVENT DATE: 20210812
